FAERS Safety Report 20559804 (Version 1)
Quarter: 2022Q1

REPORT INFORMATION
  Report Type: Spontaneous
  Country: DE (occurrence: DE)
  Receive Date: 20220307
  Receipt Date: 20220307
  Transmission Date: 20220423
  Serious: Yes (Other)
  Sender: FDA-Public Use
  Company Number: None

PATIENT
  Age: 59 Year
  Sex: Female
  Weight: 82 kg

DRUGS (4)
  1. METOPROLOL SUCCINATE [Interacting]
     Active Substance: METOPROLOL SUCCINATE
     Indication: Hypertension
     Dosage: 95 MG, QD (1 X TAGLICH 95 MG (GEGEN MITTAG)
     Route: 048
     Dates: start: 202112
  2. CANDESARTAN CILEXETIL [Concomitant]
     Active Substance: CANDESARTAN CILEXETIL
     Indication: Hypertension
     Dosage: 16 MG, QD
     Route: 048
     Dates: start: 2015, end: 2021
  3. CANDESARTAN CILEXETIL [Concomitant]
     Active Substance: CANDESARTAN CILEXETIL
     Dosage: 24 MG, QD
     Route: 048
     Dates: start: 2021
  4. HYPERICUM PERFORATUM WHOLE [Concomitant]
     Active Substance: HYPERICUM PERFORATUM WHOLE
     Indication: Depression
     Dosage: 900 MG (DAUERMEDIKATION NUR IN DEN WINTERMONATEN)
     Route: 048
     Dates: start: 2019

REACTIONS (5)
  - Blood pressure increased [Recovered/Resolved]
  - Food interaction [Unknown]
  - Restlessness [Unknown]
  - Headache [Unknown]
  - Somnolence [Unknown]

NARRATIVE: CASE EVENT DATE: 20220128
